FAERS Safety Report 6964551-8 (Version None)
Quarter: 2010Q3

REPORT INFORMATION
  Report Type: 
  Country: None (occurrence: None)
  Receive Date: 20100903
  Receipt Date: 20100805
  Transmission Date: 20110219
  Serious: Yes (Hospitalization)
  Sender: FDA-Public Use
  Company Number: US-BAYER-201017356NA

PATIENT
  Age: 47 Year
  Sex: Female
  Weight: 125 kg

DRUGS (3)
  1. YAZ [Suspect]
     Indication: ORAL CONTRACEPTION
     Route: 048
     Dates: start: 20071101, end: 20080317
  2. ANTIBIOTICS [Concomitant]
  3. NSAID'S [Concomitant]

REACTIONS (1)
  - PULMONARY EMBOLISM [None]
